FAERS Safety Report 9865198 (Version 2)
Quarter: 2014Q1

REPORT INFORMATION
  Report Type: Spontaneous
  Country: US (occurrence: US)
  Receive Date: 20140203
  Receipt Date: 20140203
  Transmission Date: 20141002
  Serious: No
  Sender: FDA-Public Use
  Company Number: US-ALLERGAN-1304621US

PATIENT
  Age: 75 Year
  Sex: Female
  Weight: 61.22 kg

DRUGS (1)
  1. RESTASIS [Suspect]
     Indication: DRY EYE
     Dosage: 2 GTT, QD
     Route: 047
     Dates: start: 201212, end: 201301

REACTIONS (6)
  - Eye inflammation [Recovered/Resolved]
  - Dry skin [Recovered/Resolved]
  - Pruritus [Recovered/Resolved]
  - Skin fissures [Recovered/Resolved]
  - Vision blurred [Recovered/Resolved]
  - Eye irritation [Recovered/Resolved]
